FAERS Safety Report 10443683 (Version 2)
Quarter: 2014Q3

REPORT INFORMATION
  Report Type: Spontaneous
  Country: US (occurrence: US)
  Receive Date: 20140910
  Receipt Date: 20140910
  Transmission Date: 20150326
  Serious: No
  Sender: FDA-Public Use
  Company Number: US-SHIRE-20140324CINRY6022

PATIENT
  Sex: Female

DRUGS (1)
  1. CINRYZE [Suspect]
     Active Substance: HUMAN C1-ESTERASE INHIBITOR
     Indication: HEREDITARY ANGIOEDEMA
     Dosage: 1000 UNITS, OTHER (EVERY 3 DAYS, TUESDAYS AND SATURDAYS)
     Route: 042
     Dates: start: 20130619

REACTIONS (3)
  - Acne [Unknown]
  - Swelling [Unknown]
  - Hereditary angioedema [Unknown]
